FAERS Safety Report 18119054 (Version 4)
Quarter: 2020Q4

REPORT INFORMATION
  Report Type: Report from Study
  Country: US (occurrence: US)
  Receive Date: 20200806
  Receipt Date: 20201226
  Transmission Date: 20210113
  Serious: No
  Sender: FDA-Public Use
  Company Number: NVSC2020US215656

PATIENT
  Age: 6 Year
  Sex: Male
  Weight: 20.2 kg

DRUGS (1)
  1. PROMACTA [Suspect]
     Active Substance: ELTROMBOPAG OLAMINE
     Indication: PLATELET COUNT DECREASED
     Dosage: UNK, QD
     Route: 048
     Dates: start: 20200412

REACTIONS (6)
  - Joint swelling [Unknown]
  - Injury [Unknown]
  - Platelet count decreased [Unknown]
  - Product dose omission issue [Unknown]
  - Paraesthesia [Unknown]
  - Arthralgia [Recovered/Resolved]

NARRATIVE: CASE EVENT DATE: 20200914
